FAERS Safety Report 5972545-4 (Version None)
Quarter: 2008Q4

REPORT INFORMATION
  Report Type: 
  Country: None (occurrence: None)
  Receive Date: 20081201
  Receipt Date: 20081121
  Transmission Date: 20090506
  Serious: Yes (Other)
  Sender: FDA-Public Use
  Company Number: B0547321A

PATIENT
  Age: 8 Year
  Sex: Male

DRUGS (7)
  1. MELPHALAN [Suspect]
     Indication: MEDULLOBLASTOMA
     Route: 042
  2. CYCLOPHOSPHAMIDE [Suspect]
     Indication: MEDULLOBLASTOMA
     Route: 065
  3. ETOPOSIDE [Suspect]
     Indication: MEDULLOBLASTOMA
     Route: 042
  4. CISPLATIN [Suspect]
     Indication: MEDULLOBLASTOMA
     Route: 065
  5. METHOTREXATE [Suspect]
     Indication: MEDULLOBLASTOMA
     Route: 042
  6. VINCRISTINE [Suspect]
     Indication: MEDULLOBLASTOMA
     Route: 042
  7. THIOTEPA [Suspect]
     Indication: MEDULLOBLASTOMA
     Route: 065

REACTIONS (1)
  - BONE SARCOMA [None]
